FAERS Safety Report 7798483-2 (Version None)
Quarter: 2011Q4

REPORT INFORMATION
  Report Type: 
  Country: None (occurrence: None)
  Receive Date: 20111005
  Receipt Date: 20110930
  Transmission Date: 20120403
  Serious: No
  Sender: FDA-Public Use
  Company Number: US-PFIZER INC-2011234228

PATIENT
  Sex: Female
  Weight: 58.503 kg

DRUGS (4)
  1. TOPROL-XL [Concomitant]
     Indication: HYPERTENSION
     Dosage: UNK
  2. ASPIRIN [Concomitant]
     Indication: HYPERTENSION
     Dosage: UNK
  3. HYDRALAZINE [Concomitant]
     Indication: HYPERTENSION
     Dosage: UNK
  4. TOVIAZ [Suspect]
     Indication: HYPERTONIC BLADDER
     Dosage: 4 MG, 1X/DAY
     Route: 048
     Dates: start: 20110920, end: 20110929

REACTIONS (1)
  - DRY MOUTH [None]
